FAERS Safety Report 5128007-X (Version None)
Quarter: 2006Q4

REPORT INFORMATION
  Report Type: 
  Country: None (occurrence: None)
  Receive Date: 20061010
  Receipt Date: 20060925
  Transmission Date: 20070319
  Serious: Yes (Hospitalization)
  Sender: FDA-Public Use
  Company Number: 230372

PATIENT

DRUGS (1)
  1. RANIBIZUMAB [Suspect]
     Indication: MACULAR DEGENERATION
     Dosage: UNK, UNK, UNK
     Dates: start: 20060627

REACTIONS (2)
  - CEREBRAL HAEMORRHAGE TRAUMATIC [None]
  - FALL [None]
